FAERS Safety Report 6401910-6 (Version None)
Quarter: 2009Q4

REPORT INFORMATION
  Report Type: 
  Country: None (occurrence: None)
  Receive Date: 20091015
  Receipt Date: 20091007
  Transmission Date: 20100525
  Serious: Yes (Hospitalization)
  Sender: FDA-Public Use
  Company Number: A0731209A

PATIENT
  Age: 65 Year
  Sex: Male
  Weight: 95.5 kg

DRUGS (26)
  1. AVANDIA [Suspect]
     Route: 048
     Dates: start: 20010101, end: 20070101
  2. CELEXA [Concomitant]
  3. ADVAIR DISKUS 100/50 [Concomitant]
  4. METFORMIN HYDROCHLORIDE [Concomitant]
  5. LISINOPRIL [Concomitant]
  6. LOPID [Concomitant]
  7. GLUCOPHAGE [Concomitant]
  8. GEMFIBROZIL [Concomitant]
  9. LEVOTHYROXINE SODIUM [Concomitant]
  10. ASPIRIN [Concomitant]
  11. CITALOPRAM HYDROBROMIDE [Concomitant]
  12. LORTAB [Concomitant]
  13. LASIX [Concomitant]
  14. SOMA [Concomitant]
  15. AMBIEN [Concomitant]
  16. NOVOLOG [Concomitant]
  17. ALBUTEROL [Concomitant]
  18. SIMVASTATIN [Concomitant]
  19. MECLIZINE [Concomitant]
  20. COREG [Concomitant]
  21. PRAVACHOL [Concomitant]
  22. KLOR-CON [Concomitant]
  23. FLOMAX [Concomitant]
  24. FOSAMAX [Concomitant]
  25. PRAVASTATIN [Concomitant]
  26. ZANTAC [Concomitant]

REACTIONS (3)
  - CARDIAC FAILURE CONGESTIVE [None]
  - INJURY [None]
  - MYOCARDIAL INFARCTION [None]
